FAERS Safety Report 9706151 (Version 3)
Quarter: 2014Q4

REPORT INFORMATION
  Report Type: Spontaneous
  Country: US (occurrence: US)
  Receive Date: 20131124
  Receipt Date: 20141119
  Transmission Date: 20150529
  Serious: Yes (Other)
  Sender: FDA-Public Use
  Company Number: US-SANOFI-AVENTIS-2012SA089461

PATIENT
  Age: 49 Year
  Sex: Female

DRUGS (1)
  1. PLAVIX [Suspect]
     Active Substance: CLOPIDOGREL BISULFATE
     Indication: CORONARY ARTERIAL STENT INSERTION
     Route: 065
     Dates: start: 200809, end: 200912

REACTIONS (4)
  - Gastrointestinal haemorrhage [Unknown]
  - Colour blindness [Unknown]
  - Haemorrhage [Unknown]
  - Concussion [Unknown]

NARRATIVE: CASE EVENT DATE: 200912
